FAERS Safety Report 10946222 (Version 2)
Quarter: 2015Q2

REPORT INFORMATION
  Report Type: Spontaneous
  Country: US (occurrence: US)
  Receive Date: 20150323
  Receipt Date: 20150416
  Transmission Date: 20150821
  Serious: No
  Sender: FDA-Public Use
  Company Number: US-BAYER-2015-033841

PATIENT
  Sex: Male

DRUGS (4)
  1. BABY ASPIRIN [Concomitant]
     Active Substance: ASPIRIN
  2. LEVITRA [Suspect]
     Active Substance: VARDENAFIL HYDROCHLORIDE TRIHYDRATE
     Indication: PROSTATOMEGALY
     Dosage: 20 MG, PRN
     Route: 048
     Dates: start: 201403
  3. LOPRESSOR [Concomitant]
     Active Substance: METOPROLOL TARTRATE
  4. ACCUPRIL [Concomitant]
     Active Substance: QUINAPRIL HYDROCHLORIDE

REACTIONS (6)
  - Pre-existing condition improved [None]
  - Product use issue [None]
  - Prostatic specific antigen decreased [Recovered/Resolved]
  - Blood pressure decreased [Recovered/Resolved]
  - Therapeutic response unexpected [Recovered/Resolved]
  - Hypotension [None]
